FAERS Safety Report 9206521 (Version 2)
Quarter: 2013Q2

REPORT INFORMATION
  Report Type: Spontaneous
  Country: GB (occurrence: GB)
  Receive Date: 20130403
  Receipt Date: 20130514
  Transmission Date: 20140414
  Serious: Yes (Death)
  Sender: FDA-Public Use
  Company Number: PHFR2013GB002010

PATIENT
  Sex: Male

DRUGS (6)
  1. CLOZARIL [Suspect]
     Indication: SCHIZOPHRENIA
     Dosage: UNK
     Route: 048
     Dates: start: 20110113
  2. CLOZARIL [Suspect]
     Dosage: 350 MG, QHS
     Route: 048
  3. AMISULPRIDE [Concomitant]
     Dosage: 100 MG, BID
  4. SERTRALINE [Concomitant]
     Dosage: 130 MG, DAILY
  5. SIMVASTATIN [Concomitant]
     Dosage: 40 MG, DAILY
  6. LORATADINE [Concomitant]
     Dosage: 10 MG, DAILY

REACTIONS (1)
  - Pneumonia [Fatal]
